FAERS Safety Report 6164902-0 (Version None)
Quarter: 2009Q2

REPORT INFORMATION
  Report Type: 
  Country: None (occurrence: None)
  Receive Date: 20090423
  Receipt Date: 20090414
  Transmission Date: 20091009
  Serious: Yes (Other)
  Sender: FDA-Public Use
  Company Number: FR-AVENTIS-200911491FR

PATIENT
  Age: 22 Year
  Sex: Female

DRUGS (1)
  1. RIFINAH [Suspect]
     Route: 048
     Dates: start: 20080103, end: 20080404

REACTIONS (4)
  - IRRITABILITY [None]
  - PARAESTHESIA [None]
  - TREMOR [None]
  - WEIGHT DECREASED [None]
